FAERS Safety Report 5079523-0 (Version None)
Quarter: 2006Q3

REPORT INFORMATION
  Report Type: 
  Country: None (occurrence: None)
  Receive Date: 20060814
  Receipt Date: 20060110
  Transmission Date: 20061208
  Serious: No
  Sender: FDA-Public Use
  Company Number: US-BRISTOL-MYERS SQUIBB COMPANY-13242334

PATIENT
  Age: 81 Year
  Sex: Female
  Weight: 175 kg

DRUGS (2)
  1. GLUCOVANCE [Suspect]
  2. CORTISONE [Concomitant]
     Indication: ARTHRITIS

REACTIONS (1)
  - BLOOD GLUCOSE INCREASED [None]
